FAERS Safety Report 7725734-2 (Version None)
Quarter: 2011Q3

REPORT INFORMATION
  Report Type: 
  Country: None (occurrence: None)
  Receive Date: 20110831
  Receipt Date: 20110822
  Transmission Date: 20111222
  Serious: Yes (Hospitalization)
  Sender: FDA-Public Use
  Company Number: 2010003393

PATIENT
  Age: 88 Year
  Sex: Female

DRUGS (2)
  1. TARCEVA [Suspect]
     Dosage: 150 MG, UID/QD, ORAL
     Route: 048
     Dates: start: 20110101
  2. TARCEVA [Suspect]
     Indication: LUNG CARCINOMA CELL TYPE UNSPECIFIED STAGE 0
     Dosage: 150 MG, UID/QD, ORAL
     Route: 048
     Dates: start: 20090304, end: 20110720

REACTIONS (2)
  - RASH [None]
  - INTESTINAL OBSTRUCTION [None]
